FAERS Safety Report 9235022 (Version 1)
Quarter: 2013Q2

REPORT INFORMATION
  Report Type: Spontaneous
  Country: US (occurrence: US)
  Receive Date: 20130416
  Receipt Date: 20130416
  Transmission Date: 20140414
  Serious: Yes (Death, Hospitalization)
  Sender: FDA-Public Use
  Company Number: US-ACTELION-A-US2012-70651

PATIENT
  Age: 67 Year
  Sex: Female

DRUGS (6)
  1. TRACLEER [Suspect]
     Indication: PULMONARY ARTERIAL HYPERTENSION
     Dosage: UNK
     Route: 048
     Dates: end: 20130402
  2. TRACLEER [Suspect]
     Dosage: 62.5 MG, OD
     Route: 048
  3. COUMADIN [Concomitant]
  4. SILDENAFIL [Concomitant]
  5. LASIX [Concomitant]
  6. ASA [Concomitant]

REACTIONS (4)
  - Lung disorder [Fatal]
  - Dyspnoea [Recovering/Resolving]
  - Pulmonary arterial hypertension [Recovering/Resolving]
  - Fatigue [Recovering/Resolving]
